FAERS Safety Report 7854363-5 (Version None)
Quarter: 2011Q4

REPORT INFORMATION
  Report Type: 
  Country: None (occurrence: None)
  Receive Date: 20111026
  Receipt Date: 20111015
  Transmission Date: 20120403
  Serious: Yes (Other)
  Sender: FDA-Public Use
  Company Number: US-PFIZER INC-2011231480

PATIENT
  Sex: Female
  Weight: 79.8 kg

DRUGS (1)
  1. CRIZOTINIB [Suspect]
     Indication: NON-SMALL CELL LUNG CANCER
     Dosage: 200 MG, 2X/DAY
     Route: 048
     Dates: start: 20110711, end: 20110919

REACTIONS (2)
  - OPTIC ATROPHY [None]
  - RETINAL VASCULAR OCCLUSION [None]
